FAERS Safety Report 8484955-4 (Version None)
Quarter: 2012Q3

REPORT INFORMATION
  Report Type: 
  Country: None (occurrence: None)
  Receive Date: 20120703
  Receipt Date: 20120628
  Transmission Date: 20120928
  Serious: Yes (Death)
  Sender: FDA-Public Use
  Company Number: JP-PFIZER INC-2012139311

PATIENT
  Age: 63 Year
  Sex: Male
  Weight: 65 kg

DRUGS (9)
  1. LYRICA [Concomitant]
     Indication: PAIN
     Dosage: 75 MG, 2X/DAY
     Route: 048
     Dates: end: 20120609
  2. LANSOPRAZOLE [Concomitant]
     Indication: PROPHYLAXIS AGAINST GASTROINTESTINAL ULCER
     Dosage: 30 MG, 1X/DAY
     Route: 048
     Dates: start: 20120401, end: 20120609
  3. LOXONIN [Concomitant]
     Indication: MUSCULOSKELETAL CHEST PAIN
     Dosage: 60 MG, 1X/DAY
     Route: 048
     Dates: start: 20120217, end: 20120609
  4. SUTENT [Suspect]
     Indication: RENAL CELL CARCINOMA
     Dosage: 50 MG, 1X/DAY
     Route: 048
     Dates: start: 20120328, end: 20120609
  5. AMLODIPINE [Concomitant]
     Indication: HYPERTENSION
     Dosage: 2.5 MG, 1X/DAY
     Route: 048
     Dates: start: 20120608, end: 20120609
  6. LENDORMIN [Concomitant]
     Indication: INSOMNIA
     Dosage: 0.25 MG, 1X/DAY
     Route: 048
     Dates: end: 20120609
  7. MAGMITT [Concomitant]
     Indication: CONSTIPATION
     Dosage: 220 MG, 3X/DAY
     Route: 048
     Dates: end: 20120609
  8. CELEBREX [Concomitant]
     Indication: PAIN
     Dosage: 50 MG, 2X/DAY
     Route: 048
     Dates: end: 20120609
  9. OXYCONTIN [Concomitant]
     Indication: MUSCULOSKELETAL CHEST PAIN
     Dosage: 20 MG, 2X/DAY
     Route: 048
     Dates: start: 20120220, end: 20120609

REACTIONS (1)
  - SUDDEN DEATH [None]
